FAERS Safety Report 10597195 (Version 1)
Quarter: 2014Q4

REPORT INFORMATION
  Report Type: Spontaneous
  Country: IT (occurrence: IT)
  Receive Date: 20141121
  Receipt Date: 20141121
  Transmission Date: 20150529
  Serious: Yes (Hospitalization)
  Sender: FDA-Public Use
  Company Number: IT-ASTRAZENECA-2014SE86929

PATIENT
  Age: 21658 Day
  Sex: Male

DRUGS (8)
  1. FELISON [Suspect]
     Active Substance: FLURAZEPAM MONOHYDROCHLORIDE
     Dosage: 30, 15 MG HARD CAPSULES
     Route: 048
     Dates: start: 20140912, end: 20140912
  2. FLUVOXAMINE [Suspect]
     Active Substance: FLUVOXAMINE
     Route: 048
     Dates: start: 20140912, end: 20140912
  3. LORAZEPAM. [Suspect]
     Active Substance: LORAZEPAM
     Route: 048
     Dates: start: 20140912, end: 20140912
  4. KCL RETARD [Suspect]
     Active Substance: POTASSIUM CHLORIDE
     Dosage: 70, 600 MG PROLONGED RELEASED TABLETS
     Route: 048
     Dates: start: 20140912, end: 20140912
  5. ENALAPRIL [Suspect]
     Active Substance: ENALAPRIL
     Route: 048
     Dates: start: 20140912, end: 20140912
  6. ALPRAZOLAM. [Suspect]
     Active Substance: ALPRAZOLAM
     Route: 048
     Dates: start: 20140912, end: 20140912
  7. SEROQUEL [Suspect]
     Active Substance: QUETIAPINE FUMARATE
     Dosage: 60, 50 MG PROLONGED RELEASED TABLETS
     Route: 048
     Dates: start: 20140912, end: 20140912
  8. AMISULPRIDE [Suspect]
     Active Substance: AMISULPRIDE
     Route: 048
     Dates: start: 20140912, end: 20140912

REACTIONS (2)
  - Sopor [Recovering/Resolving]
  - Drug abuse [Recovering/Resolving]

NARRATIVE: CASE EVENT DATE: 20140912
